FAERS Safety Report 7356394-0 (Version None)
Quarter: 2011Q1

REPORT INFORMATION
  Report Type: 
  Country: None (occurrence: None)
  Receive Date: 20110316
  Receipt Date: 20110308
  Transmission Date: 20110831
  Serious: Yes (Other)
  Sender: FDA-Public Use
  Company Number: US-ELI_LILLY_AND_COMPANY-US201103002816

PATIENT
  Sex: Female

DRUGS (2)
  1. HUMALOG [Suspect]
     Indication: DIABETES MELLITUS
     Dosage: UNK, AS NEEDED
  2. LANTUS [Concomitant]
     Dosage: UNK, DAILY (1/D)

REACTIONS (5)
  - BLOOD GLUCOSE INCREASED [None]
  - NEPHROGENIC ANAEMIA [None]
  - POST THROMBOTIC SYNDROME [None]
  - JOINT SWELLING [None]
  - RENAL DISORDER [None]
